FAERS Safety Report 15895538 (Version 2)
Quarter: 2019Q2

REPORT INFORMATION
  Report Type: Spontaneous
  Country: US (occurrence: US)
  Receive Date: 20190131
  Receipt Date: 20190412
  Transmission Date: 20190711
  Serious: Yes (Hospitalization, Other)
  Sender: FDA-Public Use
  Company Number: US-PFIZER INC-2019035642

PATIENT
  Age: 78 Year
  Sex: Male
  Weight: 68 kg

DRUGS (2)
  1. GABAPENTIN. [Suspect]
     Active Substance: GABAPENTIN
     Indication: DIABETIC NEUROPATHY
     Dosage: 600 MG, DAILY (100MG CAPSULES, 2 CAPSULES BY MOUTH THREE TIMES DAILY)
     Route: 048
     Dates: start: 2016
  2. GABAPENTIN. [Suspect]
     Active Substance: GABAPENTIN
     Dosage: 300 MG, 1X/DAY [100MG CAPSULES, 3 CAPSULES TAKEN BY MOUTH AT BEDTIME DAILY]
     Route: 048

REACTIONS (4)
  - Drug ineffective for unapproved indication [Unknown]
  - Lymphoma [Unknown]
  - Condition aggravated [Unknown]
  - Skin ulcer [Recovering/Resolving]

NARRATIVE: CASE EVENT DATE: 201811
